FAERS Safety Report 5405861-5 (Version None)
Quarter: 2007Q3

REPORT INFORMATION
  Report Type: 
  Country: None (occurrence: None)
  Receive Date: 20070806
  Receipt Date: 20070723
  Transmission Date: 20080115
  Serious: Yes (Other)
  Sender: FDA-Public Use
  Company Number: FR-AMGEN-US218585

PATIENT
  Sex: Male
  Weight: 93 kg

DRUGS (2)
  1. ENBREL [Suspect]
     Indication: PSORIATIC ARTHROPATHY
     Route: 058
     Dates: start: 20050916, end: 20070204
  2. ENBREL [Suspect]
     Indication: PSORIASIS

REACTIONS (4)
  - ANXIETY [None]
  - ATRIAL FIBRILLATION [None]
  - PERICARDITIS [None]
  - Q FEVER [None]
